FAERS Safety Report 7206037-1 (Version None)
Quarter: 2011Q1

REPORT INFORMATION
  Report Type: 
  Country: None (occurrence: None)
  Receive Date: 20110103
  Receipt Date: 20101222
  Transmission Date: 20110831
  Serious: No
  Sender: FDA-Public Use
  Company Number: UA-ELI_LILLY_AND_COMPANY-UA201012002786

PATIENT
  Age: 50 Year
  Sex: Female

DRUGS (3)
  1. SIOFOR [Concomitant]
  2. AMARYL [Concomitant]
  3. BYETTA [Suspect]
     Indication: TYPE 2 DIABETES MELLITUS
     Dosage: 0.25 MG, 2/D
     Route: 058

REACTIONS (1)
  - DERMATITIS ALLERGIC [None]
